FAERS Safety Report 9454831 (Version 1)
Quarter: 2013Q3

REPORT INFORMATION
  Report Type: Spontaneous
  Country: US (occurrence: US)
  Receive Date: 20130813
  Receipt Date: 20130813
  Transmission Date: 20140515
  Serious: Yes (Other)
  Sender: FDA-Public Use
  Company Number: US-AMGEN-USASP2013055373

PATIENT
  Age: 76 Year
  Sex: Male

DRUGS (13)
  1. PROCRIT [Suspect]
     Indication: BLOOD TESTOSTERONE INCREASED
     Dosage: UNK
     Route: 065
  2. ZYTIGA [Suspect]
     Indication: PROSTATE CANCER METASTATIC
     Dosage: 1000 MG/ 250 MG, QD
     Route: 048
     Dates: start: 201306
  3. XGEVA [Concomitant]
     Dosage: UNK
  4. PREDNISONE [Concomitant]
     Indication: PROSTATE CANCER METASTATIC
     Dosage: UNK
     Dates: start: 201306
  5. PROAMATINE [Concomitant]
     Dosage: UNK
  6. LUNESTA [Concomitant]
     Dosage: UNK
  7. CALTRATE D                         /00944201/ [Concomitant]
     Dosage: UNK
  8. VITAMIN D                          /00107901/ [Concomitant]
     Dosage: UNK
  9. CRESTOR [Concomitant]
     Dosage: UNK
  10. LUPRON [Concomitant]
     Dosage: UNK
  11. PACERONE [Concomitant]
     Dosage: UNK
  12. MIRALAX                            /00754501/ [Concomitant]
     Dosage: UNK
  13. NITROGLYCERIN [Concomitant]
     Dosage: UNK

REACTIONS (10)
  - Tremor [Not Recovered/Not Resolved]
  - Speech disorder [Not Recovered/Not Resolved]
  - Hypotension [Not Recovered/Not Resolved]
  - Quality of life decreased [Not Recovered/Not Resolved]
  - Dysstasia [Not Recovered/Not Resolved]
  - Walking aid user [Not Recovered/Not Resolved]
  - Peripheral vascular disorder [Not Recovered/Not Resolved]
  - Memory impairment [Not Recovered/Not Resolved]
  - Malaise [Recovered/Resolved]
  - Activities of daily living impaired [Not Recovered/Not Resolved]
